FAERS Safety Report 7471895-2 (Version None)
Quarter: 2011Q2

REPORT INFORMATION
  Report Type: 
  Country: None (occurrence: None)
  Receive Date: 20110511
  Receipt Date: 20100706
  Transmission Date: 20111010
  Serious: No
  Sender: FDA-Public Use
  Company Number: A0868658A

PATIENT
  Age: 69 Year
  Sex: Female
  Weight: 51.8 kg

DRUGS (10)
  1. GLUCOSAMINE [Concomitant]
  2. LOVAZA [Concomitant]
  3. VITAMINS [Concomitant]
  4. KLONOPIN [Concomitant]
  5. BOTOX [Concomitant]
  6. IMODIUM [Concomitant]
  7. TYKERB [Suspect]
     Indication: BREAST CANCER
     Dosage: 5TAB PER DAY
     Route: 048
     Dates: start: 20100601
  8. CALCIUM [Concomitant]
  9. XELODA [Suspect]
     Dosage: 3TAB TWICE PER DAY
     Route: 048
     Dates: start: 20100605
  10. SULINDAC [Concomitant]

REACTIONS (9)
  - PRURITUS [None]
  - PAIN [None]
  - STOMATITIS [None]
  - RASH ERYTHEMATOUS [None]
  - LACERATION [None]
  - GINGIVAL BLEEDING [None]
  - DIARRHOEA [None]
  - LIP BLISTER [None]
  - FATIGUE [None]
